FAERS Safety Report 9133982 (Version 2)
Quarter: 2013Q2

REPORT INFORMATION
  Report Type: Spontaneous
  Country: AU (occurrence: AU)
  Receive Date: 20130304
  Receipt Date: 20130403
  Transmission Date: 20140414
  Serious: Yes (Other)
  Sender: FDA-Public Use
  Company Number: AU-SANTEN INC.-INC-13-000077

PATIENT
  Age: 8 Decade
  Sex: Male

DRUGS (3)
  1. TIMOLOL MALEATE [Suspect]
     Route: 061
  2. LATANOPROST [Suspect]
     Route: 061
  3. BRINZOLAMIDE [Suspect]
     Route: 061

REACTIONS (1)
  - Intraocular pressure increased [Unknown]
